FAERS Safety Report 9702968 (Version 2)
Quarter: 2013Q4

REPORT INFORMATION
  Report Type: Spontaneous
  Country: BR (occurrence: BR)
  Receive Date: 20131122
  Receipt Date: 20131219
  Transmission Date: 20140711
  Serious: Yes (Other)
  Sender: FDA-Public Use
  Company Number: BR-ROCHE-1307020

PATIENT
  Sex: Female
  Weight: 50.08 kg

DRUGS (2)
  1. LUCENTIS [Suspect]
     Indication: PRODUCT USED FOR UNKNOWN INDICATION
     Route: 050
     Dates: start: 20120227
  2. INSULIN [Concomitant]

REACTIONS (2)
  - Inflammation [Unknown]
  - Injection site plaque [Unknown]
